FAERS Safety Report 18735321 (Version 1)
Quarter: 2021Q1

REPORT INFORMATION
  Report Type: Report from Study
  Country: US (occurrence: US)
  Receive Date: 20210113
  Receipt Date: 20210113
  Transmission Date: 20210419
  Serious: Yes (Hospitalization)
  Sender: FDA-Public Use
  Company Number: US-JNJFOC-20210105137

PATIENT
  Age: 52 Year
  Sex: Female

DRUGS (2)
  1. EPOPROSTENOL SODIUM. [Suspect]
     Active Substance: EPOPROSTENOL SODIUM
     Route: 042
     Dates: start: 202012
  2. EPOPROSTENOL SODIUM. [Suspect]
     Active Substance: EPOPROSTENOL SODIUM
     Indication: PULMONARY ARTERIAL HYPERTENSION
     Route: 042
     Dates: start: 201906, end: 20201215

REACTIONS (3)
  - Device breakage [Recovered/Resolved]
  - Peripheral swelling [Recovered/Resolved]
  - Product administration interrupted [Recovered/Resolved]

NARRATIVE: CASE EVENT DATE: 202012
